FAERS Safety Report 11173631 (Version 1)
Quarter: 2015Q2

REPORT INFORMATION
  Report Type: Spontaneous
  Country: US (occurrence: US)
  Receive Date: 20150609
  Receipt Date: 20150609
  Transmission Date: 20150821
  Serious: No
  Sender: FDA-Public Use
  Company Number: US-DRREDDYS-USA/USA/15/0047171

PATIENT
  Sex: Male
  Weight: 98.88 kg

DRUGS (1)
  1. FEXOFENADINE HCL [Suspect]
     Active Substance: FEXOFENADINE HYDROCHLORIDE
     Indication: ALLERGY TO PLANTS
     Route: 048
     Dates: start: 20150403

REACTIONS (2)
  - Drug ineffective [Unknown]
  - Product quality issue [Unknown]
